FAERS Safety Report 18188275 (Version 1)
Quarter: 2020Q3

REPORT INFORMATION
  Report Type: Spontaneous
  Country: US (occurrence: US)
  Receive Date: 20200824
  Receipt Date: 20200824
  Transmission Date: 20201103
  Serious: Yes (Other)
  Sender: FDA-Public Use
  Company Number: US-SHIRE-US202027034

PATIENT
  Sex: Female

DRUGS (5)
  1. MOTEGRITY [Suspect]
     Active Substance: PRUCALOPRIDE SUCCINATE
     Dosage: 2 MILLIGRAM, 1X/DAY:QD
     Route: 065
  2. WELLBUTRIN [Suspect]
     Active Substance: BUPROPION HYDROCHLORIDE
     Indication: DEPRESSION
     Route: 065
  3. LINZESS [Suspect]
     Active Substance: LINACLOTIDE
     Indication: CONSTIPATION
     Route: 065
  4. MOTEGRITY [Suspect]
     Active Substance: PRUCALOPRIDE SUCCINATE
     Indication: CONSTIPATION
     Dosage: 2 MILLIGRAM, 1X/DAY:QD
     Route: 065
  5. AMITIZA [Suspect]
     Active Substance: LUBIPROSTONE
     Indication: CONSTIPATION
     Route: 065

REACTIONS (8)
  - Hypertension [Recovered/Resolved]
  - Diarrhoea [Recovered/Resolved]
  - Affective disorder [Recovered/Resolved]
  - Depression [Recovered/Resolved]
  - Memory impairment [Recovered/Resolved]
  - Headache [Not Recovered/Not Resolved]
  - Adverse drug reaction [Recovered/Resolved]
  - Eye haemorrhage [Recovered/Resolved]
